FAERS Safety Report 25107647 (Version 1)
Quarter: 2025Q1

REPORT INFORMATION
  Report Type: Report from Study
  Country: AR (occurrence: AR)
  Receive Date: 20250322
  Receipt Date: 20250322
  Transmission Date: 20250408
  Serious: Yes (Other)
  Sender: ABBVIE
  Company Number: AR-ABBVIE-6186261

PATIENT
  Age: 63 Year
  Sex: Male

DRUGS (1)
  1. RINVOQ [Suspect]
     Active Substance: UPADACITINIB
     Indication: Dermatitis atopic
     Dosage: 30 TABLETS
     Route: 048
     Dates: start: 20250110, end: 202502

REACTIONS (3)
  - Retinal detachment [Not Recovered/Not Resolved]
  - Dermatitis atopic [Unknown]
  - Breast induration [Unknown]

NARRATIVE: CASE EVENT DATE: 20250101
